FAERS Safety Report 23047134 (Version 1)
Quarter: 2023Q4

REPORT INFORMATION
  Report Type: Other
  Country: PY (occurrence: None)
  Receive Date: 20231009
  Receipt Date: 20231009
  Transmission Date: 20240110
  Serious: Yes (Other)
  Sender: FDA-Public Use
  Company Number: PY-ROCHE-3434624

PATIENT
  Age: 3 Year
  Sex: Male
  Weight: 11.9 kg

DRUGS (1)
  1. EVRYSDI [Suspect]
     Active Substance: RISDIPLAM
     Indication: Spinal muscular atrophy
     Route: 065
     Dates: start: 20211119

REACTIONS (1)
  - Atelectasis [Not Recovered/Not Resolved]
